FAERS Safety Report 24716207 (Version 1)
Quarter: 2024Q4

REPORT INFORMATION
  Report Type: Spontaneous
  Country: US (occurrence: US)
  Receive Date: 20241210
  Receipt Date: 20241210
  Transmission Date: 20250115
  Serious: Yes (Death, Other)
  Sender: SPECGX
  Company Number: US-SPECGX-T202402337

PATIENT
  Age: 3 Year
  Sex: Female
  Weight: 15 kg

DRUGS (1)
  1. METHADONE [Suspect]
     Active Substance: METHADONE HYDROCHLORIDE
     Indication: Product used for unknown indication
     Dosage: UNK
     Route: 065
     Dates: start: 2009

REACTIONS (6)
  - Lung hyperinflation [Fatal]
  - Unresponsive to stimuli [Fatal]
  - Accidental poisoning [Fatal]
  - Vomiting [Fatal]
  - Accidental exposure to product by child [Fatal]
  - Atrial septal defect [Unknown]

NARRATIVE: CASE EVENT DATE: 20090101
